FAERS Safety Report 16415130 (Version 2)
Quarter: 2019Q2

REPORT INFORMATION
  Report Type: Spontaneous
  Country: FR (occurrence: FR)
  Receive Date: 20190611
  Receipt Date: 20190613
  Transmission Date: 20190711
  Serious: Yes (Death, Life-Threatening, Other)
  Sender: FDA-Public Use
  Company Number: FR-PFIZER INC-2019243742

PATIENT
  Age: 33 Year
  Sex: Male

DRUGS (5)
  1. DOXORUBICIN HCL [Suspect]
     Active Substance: DOXORUBICIN HYDROCHLORIDE
     Dosage: 25 MG/M2, CYCLIC (DOSE REDUCTION OF ADRIAMYCIN)
     Dates: start: 200402
  2. CYCLOPHOSPHAMIDE. [Suspect]
     Active Substance: CYCLOPHOSPHAMIDE
     Indication: CUTANEOUS T-CELL LYMPHOMA
     Dosage: UNK, CYCLIC
     Dates: start: 200206
  3. PREDNISONE. [Suspect]
     Active Substance: PREDNISONE
     Indication: CUTANEOUS T-CELL LYMPHOMA
     Dosage: UNK, CYCLIC
     Dates: start: 200206
  4. DOXORUBICIN HCL [Suspect]
     Active Substance: DOXORUBICIN HYDROCHLORIDE
     Indication: CUTANEOUS T-CELL LYMPHOMA
     Dosage: UNK, CYCLIC
     Dates: start: 200206
  5. VINCRISTINE SULFATE. [Suspect]
     Active Substance: VINCRISTINE SULFATE
     Indication: CUTANEOUS T-CELL LYMPHOMA
     Dosage: UNK, CYCLIC (REDUCING THE DOSES OF OTHER MOLECULES BY 30 PERCENT)
     Dates: start: 200206

REACTIONS (5)
  - Staphylococcal sepsis [Unknown]
  - Bone marrow toxicity [Unknown]
  - Lung infection [Fatal]
  - Paraesthesia [Unknown]
  - Cardiotoxicity [Unknown]
